FAERS Safety Report 9238495 (Version 4)
Quarter: 2013Q4

REPORT INFORMATION
  Report Type: Report from Study
  Country: JP (occurrence: JP)
  Receive Date: 20130418
  Receipt Date: 20131226
  Transmission Date: 20140711
  Serious: Yes (Hospitalization)
  Sender: FDA-Public Use
  Company Number: JP-JNJFOC-20130408093

PATIENT
  Age: 82 Year
  Sex: Female
  Weight: 41 kg

DRUGS (13)
  1. SIMPONI [Suspect]
     Indication: RHEUMATOID ARTHRITIS
     Route: 058
     Dates: start: 20121129, end: 20121129
  2. SIMPONI [Suspect]
     Indication: RHEUMATOID ARTHRITIS
     Route: 058
     Dates: start: 20120705, end: 20121129
  3. METHOTREXATE [Suspect]
     Indication: RHEUMATOID ARTHRITIS
     Route: 048
     Dates: end: 20121128
  4. METHOTREXATE [Suspect]
     Indication: RHEUMATOID ARTHRITIS
     Route: 048
     Dates: start: 20121129
  5. CELECOX [Suspect]
     Indication: RHEUMATOID ARTHRITIS
     Route: 048
     Dates: start: 20111212, end: 20121129
  6. MOHRUS TAPE [Concomitant]
     Indication: RHEUMATOID ARTHRITIS
     Route: 061
  7. FOLIAMIN [Concomitant]
     Indication: PROPHYLAXIS
  8. CYTOTEC [Concomitant]
     Indication: PROPHYLAXIS
     Route: 048
  9. KEISHIBUKURYOUGAN [Concomitant]
     Indication: RHEUMATOID ARTHRITIS
     Route: 048
  10. DAIBOUFUUTOU [Concomitant]
     Indication: RHEUMATOID ARTHRITIS
     Route: 048
  11. PLAVIX [Concomitant]
     Route: 048
  12. PLETAAL [Concomitant]
     Route: 048
  13. SALAZOSULFAPYRIDINE [Concomitant]
     Indication: RHEUMATOID ARTHRITIS
     Route: 048
     Dates: end: 20120831

REACTIONS (4)
  - Pneumocystis jirovecii pneumonia [Recovered/Resolved]
  - Acute coronary syndrome [Recovered/Resolved]
  - Renal impairment [Recovered/Resolved]
  - Dehydration [Recovered/Resolved]
